FAERS Safety Report 25461187 (Version 3)
Quarter: 2025Q3

REPORT INFORMATION
  Report Type: Spontaneous
  Country: US (occurrence: US)
  Receive Date: 20250620
  Receipt Date: 20250808
  Transmission Date: 20251021
  Serious: No
  Sender: PFIZER
  Company Number: US-PFIZER INC-202500122629

PATIENT
  Age: 53 Year
  Sex: Female
  Weight: 79.38 kg

DRUGS (1)
  1. ESTRING [Suspect]
     Active Substance: ESTRADIOL
     Indication: Menopause
     Route: 067
     Dates: start: 202502

REACTIONS (5)
  - Device defective [Unknown]
  - Vulvovaginal dryness [Unknown]
  - Vulvovaginal burning sensation [Unknown]
  - Urinary tract infection [Unknown]
  - Micturition urgency [Unknown]

NARRATIVE: CASE EVENT DATE: 20250101
